FAERS Safety Report 21056379 (Version 1)
Quarter: 2022Q3

REPORT INFORMATION
  Report Type: Spontaneous
  Country: US (occurrence: None)
  Receive Date: 20220707
  Receipt Date: 20220707
  Transmission Date: 20221026
  Serious: Yes (Hospitalization)
  Sender: FDA-Public Use
  Company Number: None

PATIENT
  Age: 61 Year
  Sex: Male

DRUGS (1)
  1. CAPECITABINE [Suspect]
     Active Substance: CAPECITABINE
     Indication: Product used for unknown indication
     Dosage: 2000MG BID ORAL?
     Route: 048
     Dates: start: 202207

REACTIONS (4)
  - Agitation [None]
  - Nausea [None]
  - Colon operation [None]
  - Anorectal operation [None]

NARRATIVE: CASE EVENT DATE: 20220707
